FAERS Safety Report 12908061 (Version 2)
Quarter: 2016Q4

REPORT INFORMATION
  Report Type: Report from Study
  Country: US (occurrence: US)
  Receive Date: 20161103
  Receipt Date: 20161222
  Transmission Date: 20170207
  Serious: Yes (Other)
  Sender: FDA-Public Use
  Company Number: US-ACTELION-A-US2016-144793

PATIENT
  Age: 48 Year
  Sex: Female

DRUGS (6)
  1. TYVASO [Concomitant]
     Active Substance: TREPROSTINIL
  2. DIGOXIN. [Concomitant]
     Active Substance: DIGOXIN
  3. COUMADIN [Concomitant]
     Active Substance: WARFARIN SODIUM
  4. TRACLEER [Suspect]
     Active Substance: BOSENTAN
     Indication: PULMONARY ARTERIAL HYPERTENSION
     Dosage: 125 MG, BID
     Route: 048
     Dates: start: 20150219
  5. ADEMPAS [Concomitant]
     Active Substance: RIOCIGUAT
  6. TORSEMIDE. [Concomitant]
     Active Substance: TORSEMIDE

REACTIONS (7)
  - Facial paralysis [Recovering/Resolving]
  - Dyskinesia [Recovering/Resolving]
  - Foreign body sensation in eyes [Recovering/Resolving]
  - Hypoaesthesia [Recovering/Resolving]
  - Lacrimation increased [Recovering/Resolving]
  - Mastication disorder [Recovering/Resolving]
  - Paralytic lagophthalmos [Recovering/Resolving]

NARRATIVE: CASE EVENT DATE: 201610
